FAERS Safety Report 7030642-9 (Version None)
Quarter: 2010Q4

REPORT INFORMATION
  Report Type: 
  Country: None (occurrence: None)
  Receive Date: 20101006
  Receipt Date: 20100924
  Transmission Date: 20110411
  Serious: Yes (Hospitalization)
  Sender: FDA-Public Use
  Company Number: DE-ROCHE-730640

PATIENT
  Sex: Female
  Weight: 60 kg

DRUGS (6)
  1. TOCILIZUMAB [Suspect]
     Indication: RHEUMATOID ARTHRITIS
     Dosage: THREE ADMINISTRATIONS GIVEN
     Route: 042
     Dates: start: 20100719, end: 20100908
  2. ARAVA [Suspect]
     Indication: RHEUMATOID ARTHRITIS
     Route: 048
  3. SULFASALAZINE [Suspect]
     Indication: RHEUMATOID ARTHRITIS
     Route: 065
  4. DECORTIN H [Suspect]
     Indication: RHEUMATOID ARTHRITIS
     Route: 048
  5. IDEOS [Concomitant]
     Indication: OSTEOPOROSIS
     Route: 048
  6. METOPROLOL TARTRATE [Concomitant]
     Indication: HYPERTENSION
     Route: 048

REACTIONS (3)
  - HYPERTENSION [None]
  - PANIC ATTACK [None]
  - PRESYNCOPE [None]
